FAERS Safety Report 20033000 (Version 1)
Quarter: 2021Q4

REPORT INFORMATION
  Report Type: Spontaneous
  Country: ZA (occurrence: ZA)
  Receive Date: 20211104
  Receipt Date: 20211104
  Transmission Date: 20220304
  Serious: Yes (Hospitalization)
  Sender: FDA-Public Use
  Company Number: ZA-NOVOPROD-861856

PATIENT
  Age: 60 Year
  Sex: Female

DRUGS (1)
  1. INSULIN ASPART [Suspect]
     Active Substance: INSULIN ASPART
     Indication: Diabetes mellitus
     Dosage: 96 IU, QD (64 UNITS MORNING; 32 UNITS NIGHT), 10 YEARS AGO
     Route: 065

REACTIONS (1)
  - COVID-19 [Unknown]
